FAERS Safety Report 13100942 (Version 1)
Quarter: 2017Q1

REPORT INFORMATION
  Report Type: Spontaneous
  Country: US (occurrence: US)
  Receive Date: 20170110
  Receipt Date: 20170110
  Transmission Date: 20170428
  Serious: Yes (Hospitalization)
  Sender: FDA-Public Use
  Company Number: None

PATIENT
  Age: 43 Year
  Sex: Male
  Weight: 96.8 kg

DRUGS (1)
  1. INTRON A [Suspect]
     Active Substance: INTERFERON ALFA-2B
     Dosage: 205 MU
     Dates: end: 20130322

REACTIONS (9)
  - Headache [None]
  - Hypomagnesaemia [None]
  - Pancreatitis [None]
  - Chest pain [None]
  - Myalgia [None]
  - Vomiting [None]
  - Platelet count decreased [None]
  - Hypophosphataemia [None]
  - Hypertension [None]

NARRATIVE: CASE EVENT DATE: 20130325
